FAERS Safety Report 5386832-4 (Version None)
Quarter: 2007Q3

REPORT INFORMATION
  Report Type: 
  Country: None (occurrence: None)
  Receive Date: 20070713
  Receipt Date: 20070709
  Transmission Date: 20080115
  Serious: Yes (Hospitalization)
  Sender: FDA-Public Use
  Company Number: US-ROXANE LABORATORIES, INC-2007-DE-04039GD

PATIENT
  Age: 68 Year
  Sex: Female

DRUGS (5)
  1. NAPROXEN [Suspect]
     Indication: OSTEOARTHRITIS
     Dosage: APPROXIMATE DAILY DOSE 6-8 G
     Route: 048
  2. HYDROCHLOROTHIAZIDE [Suspect]
     Indication: HYPERTENSION
  3. PREDNISONE [Suspect]
     Indication: OSTEOARTHRITIS
     Route: 048
  4. METHYLSULFONYLMETHANE [Concomitant]
     Indication: OSTEOARTHRITIS
  5. LEVOFLOXACIN [Concomitant]
     Indication: URINARY TRACT INFECTION

REACTIONS (12)
  - CARDIAC FAILURE CONGESTIVE [None]
  - DRUG EFFECT DECREASED [None]
  - ELECTROCARDIOGRAM CHANGE [None]
  - FLUID OVERLOAD [None]
  - GASTROINTESTINAL DISORDER [None]
  - HEPATIC FAILURE [None]
  - INAPPROPRIATE SCHEDULE OF DRUG ADMINISTRATION [None]
  - NAUSEA [None]
  - OVERDOSE [None]
  - RENAL FAILURE [None]
  - TORSADE DE POINTES [None]
  - VOMITING [None]
